FAERS Safety Report 13284405 (Version 1)
Quarter: 2017Q1

REPORT INFORMATION
  Report Type: Spontaneous
  Country: US (occurrence: US)
  Receive Date: 20170301
  Receipt Date: 20170301
  Transmission Date: 20170428
  Serious: No
  Sender: FDA-Public Use
  Company Number: US-BRAEBURN PHARMACEUTICALS, INC.-2016BBN00006

PATIENT
  Age: 31 Year
  Sex: Female
  Weight: 67.12 kg

DRUGS (11)
  1. LEVOTHYROXINE. [Concomitant]
     Active Substance: LEVOTHYROXINE
     Dosage: 1 TABLETS, 1X/DAY
     Route: 048
  2. BUSPAR [Concomitant]
     Active Substance: BUSPIRONE HYDROCHLORIDE
     Dosage: 1 TABLETS, 3X/DAY
  3. CLONIDINE. [Concomitant]
     Active Substance: CLONIDINE
     Dosage: 0.1 MG, 3X/DAY
  4. LORAZEPAM. [Concomitant]
     Active Substance: LORAZEPAM
  5. NALTREXONE [Concomitant]
     Active Substance: NALTREXONE
  6. GABAPENTIN. [Concomitant]
     Active Substance: GABAPENTIN
     Dosage: 600 MG, 3X/DAY
     Route: 048
  7. PROBUPHINE [Suspect]
     Active Substance: BUPRENORPHINE HYDROCHLORIDE
     Dosage: 4 IMPLANTS, UNK
     Dates: start: 20160713, end: 20161014
  8. CLONIDINE. [Concomitant]
     Active Substance: CLONIDINE
     Dosage: 0.2 MG, AS NEEDED
  9. GABAPENTIN. [Concomitant]
     Active Substance: GABAPENTIN
     Dosage: 100 UNK, UNK
  10. AMLODIPINE [Concomitant]
     Active Substance: AMLODIPINE BESYLATE
     Indication: HYPERTENSION
     Dosage: 1 TABLETS, 1X/DAY
  11. AMITRIPTYLINE [Concomitant]
     Active Substance: AMITRIPTYLINE
     Dosage: 1 TABLETS, 1X/DAY

REACTIONS (11)
  - Fatigue [Unknown]
  - Sleep disorder [Unknown]
  - Anxiety [Unknown]
  - Drug ineffective [Unknown]
  - Depression suicidal [Recovering/Resolving]
  - Drug withdrawal syndrome [Recovered/Resolved]
  - Toxicologic test abnormal [Unknown]
  - Oral pain [Unknown]
  - Abnormal dreams [Unknown]
  - Pain [Unknown]
  - Diarrhoea [Recovered/Resolved]

NARRATIVE: CASE EVENT DATE: 2016
